FAERS Safety Report 5958265-0 (Version None)
Quarter: 2008Q4

REPORT INFORMATION
  Report Type: 
  Country: None (occurrence: None)
  Receive Date: 20081117
  Receipt Date: 20081031
  Transmission Date: 20090506
  Serious: Yes (Other)
  Sender: FDA-Public Use
  Company Number: DSA_62256_2008

PATIENT
  Sex: Female
  Weight: 48.9885 kg

DRUGS (5)
  1. MYSOLINE [Suspect]
     Indication: CONVULSION
     Dosage: 125 MG TID ORAL
     Route: 048
     Dates: start: 19730101, end: 20060101
  2. MYSOLINE [Suspect]
     Indication: CONVULSION
     Dosage: 125 MG TID ORAL
     Route: 048
     Dates: start: 20060101
  3. DILANTIN [Suspect]
     Indication: CONVULSION
     Dosage: DF ORAL
     Route: 048
  4. VALIUM [Concomitant]
  5. MEBARAL [Concomitant]

REACTIONS (5)
  - CONVULSION [None]
  - DRUG INEFFECTIVE [None]
  - ENERGY INCREASED [None]
  - FATIGUE [None]
  - THERAPEUTIC RESPONSE UNEXPECTED WITH DRUG SUBSTITUTION [None]
